FAERS Safety Report 25081645 (Version 1)
Quarter: 2025Q1

REPORT INFORMATION
  Report Type: Spontaneous
  Country: US (occurrence: US)
  Receive Date: 20250316
  Receipt Date: 20250316
  Transmission Date: 20250409
  Serious: No
  Sender: BAUSCH AND LOMB
  Company Number: US-BAUSCHBL-2025BNL004187

PATIENT
  Sex: Female

DRUGS (5)
  1. MIEBO [Suspect]
     Active Substance: PERFLUOROHEXYLOCTANE
     Indication: Product used for unknown indication
     Dosage: DECREASED HER DOSE FROM 4 TIMES PER DAY TO 3 TIMES PER DAY, THEN TO 2 TIMES PER DAY
     Route: 047
  2. MIEBO [Suspect]
     Active Substance: PERFLUOROHEXYLOCTANE
     Dosage: DECREASED HER DOSE FROM 4 TIMES PER DAY TO 3 TIMES PER DAY, THEN TO 2 TIMES PER DAY
     Route: 047
  3. MIEBO [Suspect]
     Active Substance: PERFLUOROHEXYLOCTANE
     Dosage: DECREASED HER DOSE FROM 4 TIMES PER DAY TO 3 TIMES PER DAY, THEN TO 2 TIMES PER DAY
     Route: 047
  4. XIIDRA [Suspect]
     Active Substance: LIFITEGRAST
     Indication: Product used for unknown indication
     Route: 065
  5. RESTASIS [Concomitant]
     Active Substance: CYCLOSPORINE
     Indication: Product used for unknown indication
     Route: 065

REACTIONS (4)
  - Drug ineffective [Unknown]
  - Product packaging quantity issue [Unknown]
  - Intentional product use issue [Unknown]
  - Product complaint [Unknown]
